FAERS Safety Report 25258703 (Version 1)
Quarter: 2025Q2

REPORT INFORMATION
  Report Type: Other
  Country: CN (occurrence: CN)
  Receive Date: 20250501
  Receipt Date: 20250501
  Transmission Date: 20250716
  Serious: Yes (Other)
  Sender: QILU PHARMACEUTICAL (HAINAN) CO., LTD.
  Company Number: CN-QILU PHARMACEUTICAL (HAINAN) CO.  LTD.-QLH-000116-2025

PATIENT
  Age: 57 Year
  Sex: Male
  Weight: 62 kg

DRUGS (10)
  1. IRINOTECAN HYDROCHLORIDE [Suspect]
     Active Substance: IRINOTECAN HYDROCHLORIDE
     Indication: Rectal cancer
     Dosage: 0.20 G ONCE A DAY
     Route: 041
     Dates: start: 20250304, end: 20250304
  2. IRINOTECAN HYDROCHLORIDE [Suspect]
     Active Substance: IRINOTECAN HYDROCHLORIDE
     Dosage: 0.20 G ONCE A DAY
     Route: 041
     Dates: start: 20250325, end: 20250325
  3. GIMERACIL\OTERACIL\TEGAFUR [Suspect]
     Active Substance: GIMERACIL\OTERACIL POTASSIUM\TEGAFUR
     Indication: Rectal cancer
     Dosage: 60 MG TWICE A DAY
     Route: 048
     Dates: start: 20250305, end: 20250318
  4. GIMERACIL\OTERACIL\TEGAFUR [Suspect]
     Active Substance: GIMERACIL\OTERACIL POTASSIUM\TEGAFUR
     Dosage: 60 MG TWICE A DAY
     Route: 048
     Dates: start: 20250325
  5. CETUXIMAB [Suspect]
     Active Substance: CETUXIMAB
     Indication: Rectal cancer
     Dosage: 800 MG ONCE A DAY
     Route: 041
     Dates: start: 20250304, end: 20250304
  6. CETUXIMAB [Suspect]
     Active Substance: CETUXIMAB
     Dosage: 800 MG ONCE A DAY
     Route: 041
     Dates: start: 20250325, end: 20250325
  7. SODIUM CHLORIDE [Concomitant]
     Active Substance: SODIUM CHLORIDE
     Indication: Rectal cancer
     Route: 041
     Dates: start: 20250304, end: 20250304
  8. SODIUM CHLORIDE [Concomitant]
     Active Substance: SODIUM CHLORIDE
     Route: 041
     Dates: start: 20250304, end: 20250304
  9. SODIUM CHLORIDE [Concomitant]
     Active Substance: SODIUM CHLORIDE
     Route: 041
     Dates: start: 20250325, end: 20250325
  10. SODIUM CHLORIDE [Concomitant]
     Active Substance: SODIUM CHLORIDE
     Route: 041
     Dates: start: 20250325, end: 20250325

REACTIONS (1)
  - Conjunctivitis [Not Recovered/Not Resolved]

NARRATIVE: CASE EVENT DATE: 20250324
